FAERS Safety Report 7472726-7 (Version None)
Quarter: 2011Q2

REPORT INFORMATION
  Report Type: 
  Country: None (occurrence: None)
  Receive Date: 20110511
  Receipt Date: 20110504
  Transmission Date: 20111010
  Serious: Yes (Other)
  Sender: FDA-Public Use
  Company Number: DK-PFIZER INC-2011095555

PATIENT
  Age: 68 Year
  Sex: Female

DRUGS (2)
  1. ALPRAZOLAM [Suspect]
     Dosage: 1.75 MG, 1X/DAY
  2. ALPRAZOLAM [Suspect]
     Dosage: 2 MG, 1X/DAY

REACTIONS (3)
  - EPISTAXIS [None]
  - GINGIVITIS [None]
  - PHARYNGEAL HAEMORRHAGE [None]
